FAERS Safety Report 7550295-0 (Version None)
Quarter: 2011Q2

REPORT INFORMATION
  Report Type: 
  Country: None (occurrence: None)
  Receive Date: 20110615
  Receipt Date: 20110602
  Transmission Date: 20111010
  Serious: Yes (Hospitalization)
  Sender: FDA-Public Use
  Company Number: JP-ELI_LILLY_AND_COMPANY-JP201105005341

PATIENT
  Sex: Male
  Weight: 60.6 kg

DRUGS (6)
  1. CARBOPLATIN [Concomitant]
     Indication: LUNG ADENOCARCINOMA STAGE IV
     Dosage: 675 MG, OTHER
     Route: 042
     Dates: start: 20110426, end: 20110426
  2. VITAMIN B-12 [Concomitant]
  3. AMLODIPINE [Concomitant]
     Dosage: 2.5 MG, UNK
     Route: 048
     Dates: start: 20050101, end: 20110507
  4. ALIMTA [Suspect]
     Indication: LUNG ADENOCARCINOMA STAGE IV
     Dosage: 840 MG, OTHER
     Route: 042
     Dates: start: 20110426, end: 20110426
  5. PANVITAN [Concomitant]
     Dosage: 1 G, UNK
     Route: 048
     Dates: start: 20110405
  6. MICARDIS [Concomitant]
     Dosage: 40 MG, UNK
     Route: 048
     Dates: start: 20050101, end: 20110507

REACTIONS (2)
  - BONE MARROW FAILURE [None]
  - LIVER DISORDER [None]
